FAERS Safety Report 5128013-5 (Version None)
Quarter: 2006Q4

REPORT INFORMATION
  Report Type: 
  Country: None (occurrence: None)
  Receive Date: 20061016
  Receipt Date: 20061004
  Transmission Date: 20070319
  Serious: Yes (Hospitalization)
  Sender: FDA-Public Use
  Company Number: TW-SANOFI-SYNTHELABO-A01200608234

PATIENT
  Sex: Female
  Weight: 47.5 kg

DRUGS (10)
  1. UNASYN [Concomitant]
     Indication: INFECTION
     Route: 065
     Dates: start: 20060921, end: 20060928
  2. CACO3 [Concomitant]
     Indication: HYPOCALCAEMIA
     Route: 048
     Dates: start: 20060922
  3. SENNAPUR [Concomitant]
     Indication: CONSTIPATION
     Route: 048
     Dates: start: 20060921, end: 20060923
  4. DILATREND [Concomitant]
     Indication: HYPERTENSION
     Route: 048
     Dates: start: 20060921, end: 20060923
  5. LIPITOR [Concomitant]
     Indication: HYPERLIPIDAEMIA
     Route: 048
     Dates: start: 20040825
  6. ASPIRIN [Concomitant]
     Indication: PERCUTANEOUS CORONARY INTERVENTION
     Route: 048
     Dates: start: 20011217, end: 20060927
  7. LASIX [Concomitant]
     Indication: OEDEMA
     Route: 048
     Dates: start: 20060920, end: 20060921
  8. LASIX [Concomitant]
     Route: 048
     Dates: start: 20060921, end: 20060922
  9. SIGMART [Concomitant]
     Indication: ANGINA PECTORIS
     Route: 048
     Dates: start: 20060905, end: 20060921
  10. PLAVIX [Suspect]
     Indication: PERCUTANEOUS CORONARY INTERVENTION
     Dosage: 300 MG LOADING DOSE FOLLOWED BY 75 MG DAILY
     Route: 048
     Dates: start: 20060919, end: 20060923

REACTIONS (2)
  - DISSEMINATED INTRAVASCULAR COAGULATION [None]
  - THROMBOCYTOPENIA [None]
